FAERS Safety Report 18357533 (Version 1)
Quarter: 2020Q4

REPORT INFORMATION
  Report Type: Spontaneous
  Country: US (occurrence: US)
  Receive Date: 20201007
  Receipt Date: 20201007
  Transmission Date: 20210114
  Serious: No
  Sender: FDA-Public Use
  Company Number: US-BEH-2020123007

PATIENT
  Sex: Female

DRUGS (2)
  1. HIZENTRA [Suspect]
     Active Substance: HUMAN IMMUNOGLOBULIN G
     Indication: HUMORAL IMMUNE DEFECT
     Dosage: 6 GRAM, QOW
     Route: 058
     Dates: start: 20200902
  2. EPIDIOLEX [Concomitant]
     Active Substance: CANNABIDIOL
     Indication: EPILEPSY

REACTIONS (3)
  - Headache [Unknown]
  - Fatigue [Unknown]
  - Insomnia [Unknown]
